FAERS Safety Report 6840452-0 (Version None)
Quarter: 2010Q3

REPORT INFORMATION
  Report Type: 
  Country: None (occurrence: None)
  Receive Date: 20100714
  Receipt Date: 20100702
  Transmission Date: 20110219
  Serious: Yes (Hospitalization, Other)
  Sender: FDA-Public Use
  Company Number: US-PFIZER INC-2010064253

PATIENT
  Sex: Male
  Weight: 78.005 kg

DRUGS (6)
  1. VIAGRA [Suspect]
     Dosage: 50 MG, UNK
     Route: 048
     Dates: end: 20100101
  2. CORTISONE [Concomitant]
     Indication: BLOOD PRESSURE ABNORMAL
     Dosage: 360 MG, 1X/DAY
  3. TENEX [Concomitant]
     Indication: BLOOD PRESSURE ABNORMAL
     Dosage: 2 MG, 1X/DAY
  4. LABETALOL [Concomitant]
     Indication: CARDIAC DISORDER
     Dosage: 200 MG, 2X/DAY
  5. LABETALOL [Concomitant]
     Indication: BLOOD PRESSURE ABNORMAL
  6. ALTACE [Concomitant]
     Indication: BLOOD PRESSURE ABNORMAL
     Dosage: 20 MG, 1X/DAY
     Route: 048

REACTIONS (5)
  - BLOOD PRESSURE INCREASED [None]
  - CELLULITIS [None]
  - CONTUSION [None]
  - FALL [None]
  - HAEMATOMA [None]
